FAERS Safety Report 4283343-4 (Version None)
Quarter: 2004Q1

REPORT INFORMATION
  Report Type: 
  Country: None (occurrence: None)
  Receive Date: 20040129
  Receipt Date: 20040119
  Transmission Date: 20041129
  Serious: Yes (Death, Life-Threatening, Hospitalization)
  Sender: FDA-Public Use
  Company Number: GB-JNJFOC-20040103267

PATIENT
  Age: 64 Year
  Sex: Female

DRUGS (8)
  1. REMICADE [Suspect]
     Indication: RHEUMATOID ARTHRITIS
     Dosage: 200 MG, INTRAVENOUS
     Route: 042
     Dates: start: 20020715, end: 20030101
  2. AMIODARONE HCL [Concomitant]
  3. BUMETANIDE [Concomitant]
  4. ASPIRIN [Concomitant]
  5. DICLOFENAC SODIUM [Concomitant]
  6. SULFASALIZINE (SULFASALIZINE) [Concomitant]
  7. METHOTREXATE [Concomitant]
  8. CO-CODAMOL (PANADEINE CO) [Concomitant]

REACTIONS (5)
  - CARDIAC FAILURE CONGESTIVE [None]
  - CARDIAC MURMUR [None]
  - CARDIOMEGALY [None]
  - CONGESTIVE CARDIOMYOPATHY [None]
  - NAUSEA [None]
